FAERS Safety Report 21695875 (Version 1)
Quarter: 2022Q4

REPORT INFORMATION
  Report Type: Spontaneous
  Country: CA (occurrence: CA)
  Receive Date: 20221207
  Receipt Date: 20221207
  Transmission Date: 20230113
  Serious: Yes (Other)
  Sender: FDA-Public Use
  Company Number: None

PATIENT
  Age: 79 Year
  Sex: Male

DRUGS (4)
  1. TOUJEO [Suspect]
     Active Substance: INSULIN GLARGINE
     Indication: Type 2 diabetes mellitus
     Dosage: 10.0 MILLIGRAM, QD
     Route: 058
  2. LINAGLIPTIN [Suspect]
     Active Substance: LINAGLIPTIN
     Indication: Type 2 diabetes mellitus
     Dosage: UNK
     Route: 048
  3. VICTOZA [Suspect]
     Active Substance: LIRAGLUTIDE
     Indication: Type 2 diabetes mellitus
     Dosage: 30DOSES(0.6MG)- 15DOSES(1.2MG)- 10DOSES(1.8MG). 1/2/3
  4. VICTOZA [Suspect]
     Active Substance: LIRAGLUTIDE
     Indication: Product used for unknown indication
     Dosage: 30DOSES(0.6MG)- 15DOSES(1.2MG)- 10DOSES(1.8MG). 1/2/3 6.0 IU (INTERNATIONAL UNIT) 3 EVERY 1 DAYS

REACTIONS (2)
  - Eye infection [Unknown]
  - Glaucoma surgery [Unknown]
